FAERS Safety Report 8956032 (Version 1)
Quarter: 2012Q4

REPORT INFORMATION
  Report Type: 
  Country: US (occurrence: US)
  Receive Date: 20121210
  Receipt Date: 20121210
  Transmission Date: 20130627
  Serious: Yes (Hospitalization)
  Sender: FDA-Public Use
  Company Number: US-BAYER-2012-127973

PATIENT
  Age: 29 Year
  Sex: Female

DRUGS (5)
  1. YASMIN [Suspect]
     Indication: MENSES LACK OF
  2. HYDROCODONE [Concomitant]
  3. LEVAQUIN [Concomitant]
  4. NEXIUM [Concomitant]
  5. XOPENEX [Concomitant]

REACTIONS (2)
  - Pulmonary embolism [None]
  - Off label use [None]
